FAERS Safety Report 18625175 (Version 1)
Quarter: 2020Q4

REPORT INFORMATION
  Report Type: Spontaneous
  Country: US (occurrence: US)
  Receive Date: 20201217
  Receipt Date: 20201217
  Transmission Date: 20210114
  Serious: No
  Sender: FDA-Public Use
  Company Number: US-AMGEN INC.-USASP2020200737

PATIENT
  Age: 57 Year
  Sex: Female

DRUGS (4)
  1. VALIUM [Concomitant]
     Active Substance: DIAZEPAM
     Dosage: HALF IN THE MORNING AND HALF IN THE MIDDLE OF THE DAY.
  2. FIORICET [Concomitant]
     Active Substance: ACETAMINOPHEN\BUTALBITAL\CAFFEINE
  3. AIMOVIG [Suspect]
     Active Substance: ERENUMAB-AOOE
     Indication: MIGRAINE PROPHYLAXIS
     Dosage: 70 MILLIGRAM
     Route: 065
     Dates: start: 202011
  4. CORTISONE [Concomitant]
     Active Substance: CORTISONE

REACTIONS (4)
  - Migraine [Unknown]
  - Vertigo [Unknown]
  - Therapeutic product effect decreased [Unknown]
  - Tinnitus [Unknown]

NARRATIVE: CASE EVENT DATE: 202012
